FAERS Safety Report 25473282 (Version 1)
Quarter: 2025Q2

REPORT INFORMATION
  Report Type: Spontaneous
  Country: US (occurrence: None)
  Receive Date: 20250623
  Receipt Date: 20250623
  Transmission Date: 20250717
  Serious: No
  Sender: FDA-CTU
  Company Number: None

PATIENT
  Age: 67 Year
  Sex: Male
  Weight: 69.85 kg

DRUGS (1)
  1. IMATINIB MESYLATE [Suspect]
     Active Substance: IMATINIB MESYLATE
     Indication: Philadelphia positive chronic myeloid leukaemia
     Dosage: TAKE 1 TABLET BY MOUTH DAILY WITH FOOD \T\GLASS OF WATER AS DIRECTED DO NOT TAK WITH GR
     Route: 048
     Dates: start: 202505

REACTIONS (2)
  - Red blood cell count decreased [None]
  - Abdominal pain upper [None]
